FAERS Safety Report 23653040 (Version 1)
Quarter: 2024Q1

REPORT INFORMATION
  Report Type: Spontaneous
  Country: BR (occurrence: BR)
  Receive Date: 20240320
  Receipt Date: 20240320
  Transmission Date: 20240410
  Serious: Yes (Other)
  Sender: FDA-Public Use
  Company Number: BR-CHEPLA-2024003475

PATIENT
  Sex: Female
  Weight: 61.5 kg

DRUGS (4)
  1. CLONAZEPAM [Suspect]
     Active Substance: CLONAZEPAM
     Indication: Depression
     Dosage: EVERY NIGHT, ONGOING, 2.5MG/ML?DAILY DOSE: 10 DROP
     Route: 048
     Dates: start: 2001
  2. CHOLECALCIFEROL [Concomitant]
     Active Substance: CHOLECALCIFEROL
     Indication: Vitamin supplementation
     Dosage: 2 TABLET WEEKLY, ONGOING
     Route: 048
     Dates: start: 2016
  3. PROBIATOP [Concomitant]
     Indication: Dysbiosis
     Dosage: ONGOING?DAILY DOSE: 1 DOSAGE FORM
     Route: 048
     Dates: start: 202311
  4. VENLAFAXINE HYDROCHLORIDE [Concomitant]
     Active Substance: VENLAFAXINE HYDROCHLORIDE
     Dosage: 1 DOSE UNIQUE
     Route: 048
     Dates: start: 202403, end: 202403

REACTIONS (20)
  - Arrhythmia [Not Recovered/Not Resolved]
  - Haematochezia [Not Recovered/Not Resolved]
  - Umbilical hernia [Recovered/Resolved]
  - Hiatus hernia [Recovered/Resolved]
  - Diarrhoea [Not Recovered/Not Resolved]
  - Listless [Not Recovered/Not Resolved]
  - Asthenia [Not Recovered/Not Resolved]
  - Anal incontinence [Not Recovered/Not Resolved]
  - Depression [Not Recovered/Not Resolved]
  - Helicobacter infection [Recovered/Resolved]
  - COVID-19 [Recovered/Resolved]
  - Feeling hot [Recovered/Resolved]
  - Paraesthesia [Recovered/Resolved]
  - Chest discomfort [Recovered/Resolved]
  - Weight decreased [Not Recovered/Not Resolved]
  - Nasal disorder [Recovered/Resolved]
  - Decreased appetite [Not Recovered/Not Resolved]
  - Gallbladder operation [Recovered/Resolved]
  - Product use in unapproved indication [Recovered/Resolved]
  - Product use in unapproved indication [Not Recovered/Not Resolved]

NARRATIVE: CASE EVENT DATE: 20010101
